FAERS Safety Report 4568135-0 (Version None)
Quarter: 2005Q1

REPORT INFORMATION
  Report Type: 
  Country: None (occurrence: None)
  Receive Date: 20050202
  Receipt Date: 20050127
  Transmission Date: 20050727
  Serious: Yes (Other)
  Sender: FDA-Public Use
  Company Number: CH-BRISTOL-MYERS SQUIBB COMPANY-12841672

PATIENT
  Age: 46 Year
  Sex: Male

DRUGS (6)
  1. VIDEX EC [Suspect]
     Indication: HIV INFECTION
     Route: 048
     Dates: start: 20030201
  2. ZERIT [Suspect]
     Indication: HIV INFECTION
     Route: 048
     Dates: start: 20030201
  3. STOCRIN [Suspect]
     Indication: HIV INFECTION
     Route: 048
     Dates: start: 20030201
  4. KALETRA [Suspect]
     Indication: HIV INFECTION
     Route: 048
     Dates: start: 20030201
  5. ASPIRIN [Suspect]
     Route: 048
     Dates: start: 20030101
  6. INSULATARD HUMAN INJECTION [Suspect]
     Route: 058
     Dates: start: 20030101

REACTIONS (1)
  - RETINOPATHY [None]
